FAERS Safety Report 26005911 (Version 1)
Quarter: 2025Q4

REPORT INFORMATION
  Report Type: Spontaneous
  Country: US (occurrence: None)
  Receive Date: 20251105
  Receipt Date: 20251105
  Transmission Date: 20260118
  Serious: Yes (Hospitalization)
  Sender: FDA-CTU
  Company Number: None

PATIENT
  Age: 40 Year
  Sex: Male
  Weight: 65.5 kg

DRUGS (7)
  1. MYCOPHENOLIC ACID [Suspect]
     Active Substance: MYCOPHENOLIC ACID
     Dosage: 720 MG BID ORAL
     Route: 048
     Dates: start: 20231203, end: 20241105
  2. MAGNESIUM OXIDE [Concomitant]
     Active Substance: MAGNESIUM OXIDE
  3. TACROLIMUS [Concomitant]
     Active Substance: TACROLIMUS
  4. CINACALCET [Concomitant]
     Active Substance: CINACALCET
  5. ROSUVASTATIN [Concomitant]
     Active Substance: ROSUVASTATIN
  6. VALACYCLOVIR [Concomitant]
     Active Substance: VALACYCLOVIR HYDROCHLORIDE
  7. CARVEDILOL [Concomitant]
     Active Substance: CARVEDILOL

REACTIONS (5)
  - Sepsis [None]
  - Urinary tract infection [None]
  - Escherichia infection [None]
  - Ureteric stenosis [None]
  - Acute kidney injury [None]

NARRATIVE: CASE EVENT DATE: 20251103
